FAERS Safety Report 8884882 (Version 2)
Quarter: 2012Q4

REPORT INFORMATION
  Report Type: 
  Country: US (occurrence: US)
  Receive Date: 20121102
  Receipt Date: 20121213
  Transmission Date: 20130627
  Serious: No
  Sender: FDA-Public Use
  Company Number: US-PFIZER INC-2012273488

PATIENT
  Age: 76 Year
  Sex: Male
  Weight: 128 kg

DRUGS (5)
  1. LIPITOR [Suspect]
     Indication: HIGH CHOLESTEROL
     Dosage: 10 mg, 1x/day
  2. LIPITOR [Suspect]
     Dosage: 10 mg, 1x/day
     Dates: end: 201207
  3. ATENOLOL [Concomitant]
     Dosage: 50 mg, UNK
  4. HYDROCHLOROTHIAZIDE [Concomitant]
     Dosage: 25 mg, UNK
  5. LISINOPRIL [Concomitant]
     Dosage: 2.5 mg, UNK

REACTIONS (3)
  - Blood testosterone decreased [Unknown]
  - Pain in extremity [Unknown]
  - Muscular weakness [Unknown]
